FAERS Safety Report 5580371-3 (Version None)
Quarter: 2008Q1

REPORT INFORMATION
  Report Type: 
  Country: None (occurrence: None)
  Receive Date: 20080103
  Receipt Date: 20071221
  Transmission Date: 20080703
  Serious: Yes (Hospitalization)
  Sender: FDA-Public Use
  Company Number: AR-ELI_LILLY_AND_COMPANY-AR200712004628

PATIENT
  Sex: Female

DRUGS (3)
  1. OLANZAPINE [Suspect]
     Dosage: 20 MG, DAILY (1/D)
     Dates: end: 20070101
  2. LITHIUM [Concomitant]
  3. LAMOTRIGINE [Concomitant]

REACTIONS (5)
  - CATATONIA [None]
  - DEHYDRATION [None]
  - HYPERTHERMIA [None]
  - MUSCLE RIGIDITY [None]
  - NEUROLEPTIC MALIGNANT SYNDROME [None]
